FAERS Safety Report 20749596 (Version 1)
Quarter: 2022Q2

REPORT INFORMATION
  Report Type: Spontaneous
  Country: US (occurrence: None)
  Receive Date: 20220425
  Receipt Date: 20220425
  Transmission Date: 20220720
  Serious: No
  Sender: FDA-Public Use
  Company Number: None

PATIENT
  Age: 63 Year
  Sex: Female
  Weight: 72.12 kg

DRUGS (1)
  1. TREMFYA [Suspect]
     Active Substance: GUSELKUMAB
     Indication: Psoriasis
     Dosage: OTHER FREQUENCY : WEEK 0 AND WEEK 4;?
     Route: 058
     Dates: start: 201905

REACTIONS (3)
  - Fall [None]
  - Rib fracture [None]
  - Leg amputation [None]
